FAERS Safety Report 15598171 (Version 1)
Quarter: 2018Q4

REPORT INFORMATION
  Report Type: Spontaneous
  Country: US (occurrence: US)
  Receive Date: 20181108
  Receipt Date: 20181108
  Transmission Date: 20190205
  Serious: No
  Sender: FDA-Public Use
  Company Number: US-PFIZER INC-2018445175

PATIENT
  Age: 71 Year

DRUGS (1)
  1. LYRICA [Suspect]
     Active Substance: PREGABALIN
     Dosage: UNK, TWICE DAILY

REACTIONS (4)
  - Pain [Unknown]
  - Malaise [Unknown]
  - Limb discomfort [Unknown]
  - Musculoskeletal pain [Unknown]
